FAERS Safety Report 5726037-8 (Version None)
Quarter: 2008Q2

REPORT INFORMATION
  Report Type: 
  Country: None (occurrence: None)
  Receive Date: 20080502
  Receipt Date: 20080422
  Transmission Date: 20081010
  Serious: Yes (Other)
  Sender: FDA-Public Use
  Company Number: US-AMGEN-QUU275855

PATIENT
  Sex: Male

DRUGS (2)
  1. ENBREL [Suspect]
     Indication: PSORIATIC ARTHROPATHY
     Route: 058
     Dates: start: 20030101
  2. ENBREL [Suspect]
     Indication: PSORIASIS

REACTIONS (5)
  - ARTHRALGIA [None]
  - INJECTION SITE PAIN [None]
  - JOINT STIFFNESS [None]
  - MOOD SWINGS [None]
  - PSORIASIS [None]
